FAERS Safety Report 7001992 (Version 6)
Quarter: 2014Q3

REPORT INFORMATION
  Report Type: Spontaneous
  Country: US (occurrence: US)
  Receive Date: 20090526
  Receipt Date: 20140825
  Transmission Date: 20150326
  Serious: Yes (Hospitalization, Other)
  Sender: FDA-Public Use
  Company Number: US-BAYER-200921159NA

PATIENT
  Age: 39 Year
  Sex: Female
  Weight: 82 kg

DRUGS (2)
  1. MIRENA [Suspect]
     Active Substance: LEVONORGESTREL
     Indication: CONTRACEPTION
     Dosage: 20 MCG/24HR, CONT
     Route: 015
     Dates: start: 20071112, end: 20090521
  2. ZYRTEC [Concomitant]
     Active Substance: CETIRIZINE HYDROCHLORIDE
     Indication: MULTIPLE ALLERGIES
     Dosage: UNK
     Dates: start: 2004

REACTIONS (9)
  - Uterine perforation [None]
  - Vaginal haemorrhage [Not Recovered/Not Resolved]
  - Abdominal pain [Not Recovered/Not Resolved]
  - Emotional distress [None]
  - Abdominal pain lower [Not Recovered/Not Resolved]
  - Device issue [None]
  - Device dislocation [None]
  - Ovarian cyst ruptured [Not Recovered/Not Resolved]
  - Injury [None]

NARRATIVE: CASE EVENT DATE: 200905
